FAERS Safety Report 7900564-7 (Version None)
Quarter: 2011Q4

REPORT INFORMATION
  Report Type: 
  Country: None (occurrence: None)
  Receive Date: 20111108
  Receipt Date: 20111022
  Transmission Date: 20120403
  Serious: Yes (Other)
  Sender: FDA-Public Use
  Company Number: TR-US-EMD SERONO, INC.-7093967

PATIENT
  Sex: Female
  Weight: 57 kg

DRUGS (5)
  1. CYMBALTA [Suspect]
     Indication: DEPRESSION
     Route: 048
     Dates: start: 20110201, end: 20111019
  2. SERTRALINE HYDROCHLORIDE [Suspect]
     Indication: SLEEP DISORDER
     Route: 048
     Dates: start: 20050101, end: 20111019
  3. NEBIVOLOL HCL [Suspect]
     Indication: HYPERTENSION
     Route: 048
     Dates: start: 19960101, end: 20111019
  4. ETODOLAC [Suspect]
     Indication: PAIN
     Route: 048
     Dates: start: 20110201, end: 20111019
  5. REBIF [Suspect]
     Indication: MULTIPLE SCLEROSIS
     Route: 058
     Dates: start: 20111001, end: 20111019

REACTIONS (1)
  - BILE DUCT OBSTRUCTION [None]
